FAERS Safety Report 21441361 (Version 1)
Quarter: 2022Q4

REPORT INFORMATION
  Report Type: Report from Study
  Country: US (occurrence: US)
  Receive Date: 20221011
  Receipt Date: 20221011
  Transmission Date: 20230113
  Serious: No
  Sender: FDA-Public Use
  Company Number: US-ABBVIE-4148371

PATIENT
  Sex: Female

DRUGS (5)
  1. SKYRIZI [Suspect]
     Active Substance: RISANKIZUMAB-RZAA
     Indication: Product used for unknown indication
     Route: 058
     Dates: start: 20220906
  2. SKYRIZI [Suspect]
     Active Substance: RISANKIZUMAB-RZAA
     Route: 058
     Dates: start: 20220906
  3. Moderna [Concomitant]
     Indication: COVID-19 immunisation
     Dosage: ONE IN ONCE, 1 ST DOSE
     Route: 030
     Dates: start: 20210107, end: 20220107
  4. Moderna [Concomitant]
     Indication: COVID-19 immunisation
     Dosage: ONE IN ONCE, 2ND DOSE
     Route: 030
     Dates: start: 20210204, end: 20210204
  5. Moderna [Concomitant]
     Indication: COVID-19 immunisation
     Dosage: ONE IN ONCE, BOOSTER DOSE
     Route: 030
     Dates: start: 20211209, end: 20211209

REACTIONS (3)
  - Peripheral swelling [Unknown]
  - Urticaria [Unknown]
  - Pain in extremity [Unknown]

NARRATIVE: CASE EVENT DATE: 20220101
